FAERS Safety Report 9515264 (Version 1)
Quarter: 2013Q1

REPORT INFORMATION
  Report Type: Spontaneous
  Country: US (occurrence: None)
  Receive Date: 20130305
  Receipt Date: 20130305
  Transmission Date: 20140127
  Serious: Yes (Other)
  Sender: FDA-Public Use
  Company Number: 163-21880-12102980

PATIENT
  Age: 74 Year
  Sex: Female

DRUGS (4)
  1. REVLIMID [Suspect]
     Indication: MYELODYSPLASTIC SYNDROME
     Dosage: 10 MG, 21 IN 21 D, PO
     Route: 048
     Dates: start: 20121004
  2. AMLODIPINE BESYLATE (AMLODIPINE BESILATE) (UNKNOWN) [Concomitant]
  3. CALCIUM 600 (UNKNOWN) [Concomitant]
  4. CENTRUM SILVER (CENTRUM SILVER) (UNKNOWN)? [Concomitant]

REACTIONS (1)
  - Dry mouth [None]
